FAERS Safety Report 4920648-5 (Version None)
Quarter: 2006Q1

REPORT INFORMATION
  Report Type: 
  Country: None (occurrence: None)
  Receive Date: 20060113
  Receipt Date: 20051031
  Transmission Date: 20060701
  Serious: No
  Sender: FDA-Public Use
  Company Number: 2005SP003776

PATIENT
  Sex: Female

DRUGS (1)
  1. LUNESTA [Suspect]
     Route: 065
     Dates: start: 20050101

REACTIONS (1)
  - DYSGEUSIA [None]
